FAERS Safety Report 5074769-X (Version None)
Quarter: 2006Q3

REPORT INFORMATION
  Report Type: 
  Country: None (occurrence: None)
  Receive Date: 20060807
  Receipt Date: 20060724
  Transmission Date: 20061208
  Serious: Yes (Death, Life-Threatening, Hospitalization, Other)
  Sender: FDA-Public Use
  Company Number: 2006-00762

PATIENT
  Age: 73 Year
  Sex: Male
  Weight: 73 kg

DRUGS (1)
  1. VELCADE [Suspect]
     Indication: MULTIPLE MYELOMA
     Dosage: 2.40 MG
     Dates: start: 20060327

REACTIONS (20)
  - ACCIDENTAL OVERDOSE [None]
  - CANDIDA SEPSIS [None]
  - CARDIAC FAILURE [None]
  - DIALYSIS [None]
  - DRUG TOXICITY [None]
  - ESCHERICHIA SEPSIS [None]
  - HYPOTENSION [None]
  - INCORRECT DOSE ADMINISTERED [None]
  - LACTIC ACIDOSIS [None]
  - MYOCARDITIS [None]
  - NAUSEA [None]
  - OEDEMA [None]
  - PULMONARY ALVEOLAR HAEMORRHAGE [None]
  - PULMONARY OEDEMA [None]
  - PYREXIA [None]
  - RENAL FAILURE ACUTE [None]
  - RESPIRATORY DISORDER [None]
  - SEPTIC SHOCK [None]
  - THROMBOCYTOPENIA [None]
  - TROPONIN INCREASED [None]
